FAERS Safety Report 13839504 (Version 1)
Quarter: 2017Q3

REPORT INFORMATION
  Report Type: Report from Study
  Country: US (occurrence: US)
  Receive Date: 20170807
  Receipt Date: 20170807
  Transmission Date: 20171127
  Serious: Yes (Hospitalization, Other)
  Sender: FDA-Public Use
  Company Number: US-GILEAD-2017-0286486

PATIENT
  Age: 54 Year
  Sex: Female

DRUGS (2)
  1. ADCIRCA [Concomitant]
     Active Substance: TADALAFIL
  2. AMBRISENTAN [Suspect]
     Active Substance: AMBRISENTAN
     Indication: PRODUCT USED FOR UNKNOWN INDICATION
     Dosage: 10 MG, QD
     Route: 065

REACTIONS (9)
  - Nasopharyngitis [Not Recovered/Not Resolved]
  - Blood glucose abnormal [Unknown]
  - Rhinorrhoea [Not Recovered/Not Resolved]
  - Ketoacidosis [Unknown]
  - Unevaluable event [Unknown]
  - Cough [Unknown]
  - Pulmonary arterial hypertension [Not Recovered/Not Resolved]
  - Nasal congestion [Not Recovered/Not Resolved]
  - Drug dose omission [Unknown]
